FAERS Safety Report 7631707 (Version 3)
Quarter: 2015Q1

REPORT INFORMATION
  Report Type: Spontaneous
  Country: US (occurrence: US)
  Receive Date: 20101018
  Receipt Date: 20150202
  Transmission Date: 20150721
  Serious: Yes (Hospitalization, Other)
  Sender: FDA-Public Use
  Company Number: US-BAYER-201036866NA

PATIENT
  Age: 46 Year
  Sex: Female

DRUGS (12)
  1. AMOXICILLIN. [Concomitant]
     Active Substance: AMOXICILLIN
     Dosage: 500 MG, UNK
     Route: 048
     Dates: start: 20081015
  2. OXCARBAZEPINE. [Concomitant]
     Active Substance: OXCARBAZEPINE
     Dosage: 300 MG, UNK
     Route: 048
     Dates: start: 20080926
  3. OCUFLOX [Concomitant]
     Active Substance: OFLOXACIN
     Dosage: 0.3 %, UNK
  4. SIMVASTATIN. [Concomitant]
     Active Substance: SIMVASTATIN
     Dosage: 20 MG, UNK
     Route: 048
     Dates: start: 20080926
  5. ACYCLOVIR [ACICLOVIR] [Concomitant]
     Active Substance: ACYCLOVIR
     Dosage: 400 MG, UNK
     Route: 048
     Dates: start: 20050523
  6. YASMIN [Suspect]
     Active Substance: DROSPIRENONE\ETHINYL ESTRADIOL
     Indication: CONTRACEPTION
     Dosage: UNK UNK, QD
     Route: 048
     Dates: start: 20020711, end: 20080924
  7. GUAIFEN-C [Concomitant]
     Dosage: 100/10MG
     Route: 048
     Dates: start: 20070406
  8. FLUTICASONE [Concomitant]
     Active Substance: FLUTICASONE\FLUTICASONE PROPIONATE
     Dosage: 50 MG, UNK
     Route: 045
  9. LOVASTATIN. [Concomitant]
     Active Substance: LOVASTATIN
  10. BENZONATATE. [Concomitant]
     Active Substance: BENZONATATE
     Dosage: 100 MG, UNK
     Route: 048
     Dates: start: 20051115
  11. TRIAMCINOLONE [TRIAMCINOLONE] [Concomitant]
     Dosage: 0.1 %, UNK
  12. TEGRETOL [Concomitant]
     Active Substance: CARBAMAZEPINE

REACTIONS (12)
  - Hypoaesthesia [Recovered/Resolved]
  - Drooling [Recovered/Resolved]
  - Seizure [None]
  - Musculoskeletal pain [Recovered/Resolved]
  - Depression [Recovered/Resolved]
  - Pain [Recovered/Resolved]
  - Asthenia [Recovered/Resolved]
  - Disturbance in attention [Recovered/Resolved]
  - Memory impairment [Recovered/Resolved]
  - Balance disorder [Recovered/Resolved]
  - Cerebrovascular accident [Recovered/Resolved]
  - Fear [Recovered/Resolved]

NARRATIVE: CASE EVENT DATE: 20080924
